FAERS Safety Report 19213062 (Version 1)
Quarter: 2021Q2

REPORT INFORMATION
  Report Type: Spontaneous
  Country: IL (occurrence: IL)
  Receive Date: 20210504
  Receipt Date: 20210504
  Transmission Date: 20210717
  Serious: Yes (Death, Other)
  Sender: FDA-Public Use
  Company Number: IL-JNJFOC-20210447236

PATIENT
  Age: 61 Year
  Sex: Female

DRUGS (1)
  1. ERDAFITINIB. [Suspect]
     Active Substance: ERDAFITINIB
     Indication: BLADDER CANCER
     Route: 065

REACTIONS (5)
  - Dry eye [Unknown]
  - Onycholysis [Unknown]
  - Dry skin [Unknown]
  - Death [Fatal]
  - Mucosal inflammation [Unknown]
